FAERS Safety Report 5410779-8 (Version None)
Quarter: 2007Q3

REPORT INFORMATION
  Report Type: 
  Country: None (occurrence: None)
  Receive Date: 20070810
  Receipt Date: 20070413
  Transmission Date: 20080115
  Serious: No
  Sender: FDA-Public Use
  Company Number: A0647206A

PATIENT
  Age: 35 Year
  Sex: Male

DRUGS (6)
  1. PAXIL CR [Suspect]
     Route: 048
     Dates: start: 20050101
  2. STRATTERA [Concomitant]
  3. TOPAMAX [Concomitant]
  4. NEURONTIN [Concomitant]
  5. LITHIUM CARBONATE [Concomitant]
  6. ABILIFY [Concomitant]

REACTIONS (1)
  - PREMATURE EJACULATION [None]
